FAERS Safety Report 21281759 (Version 4)
Quarter: 2022Q4

REPORT INFORMATION
  Report Type: Report from Study
  Country: BR (occurrence: BR)
  Receive Date: 20220901
  Receipt Date: 20221116
  Transmission Date: 20230112
  Serious: Yes (Hospitalization, Other)
  Sender: FDA-Public Use
  Company Number: BR-ABBVIE-22K-020-4522321-00

PATIENT
  Age: 69 Year
  Sex: Female
  Weight: 96 kg

DRUGS (8)
  1. RINVOQ [Suspect]
     Active Substance: UPADACITINIB
     Indication: Rheumatoid arthritis
     Dosage: 1 TABLET
     Route: 048
     Dates: start: 20210409
  2. QUETIAPINE [Concomitant]
     Active Substance: QUETIAPINE
     Indication: Sedative therapy
     Dosage: 2 DAILY
  3. PANTOPRAZOLE [Concomitant]
     Active Substance: PANTOPRAZOLE
     Indication: Reflux gastritis
  4. PAROXETINE [Concomitant]
     Active Substance: PAROXETINE
     Indication: Sedative therapy
  5. RIVOTRIL [Concomitant]
     Active Substance: CLONAZEPAM
     Indication: Sedative therapy
  6. DOMPERIDONE [Concomitant]
     Active Substance: DOMPERIDONE
     Indication: Reflux gastritis
  7. BECLOMETHASONE DIPROPIONATE [Concomitant]
     Active Substance: BECLOMETHASONE DIPROPIONATE
     Indication: Product used for unknown indication
  8. CLONAZEPAM [Concomitant]
     Active Substance: CLONAZEPAM
     Indication: Sedative therapy

REACTIONS (8)
  - Fall [Recovered/Resolved]
  - Gait disturbance [Unknown]
  - Gait inability [Unknown]
  - Joint dislocation [Recovered/Resolved]
  - Cartilage injury [Unknown]
  - Illness [Unknown]
  - Arthritis [Recovered/Resolved]
  - Cartilage injury [Unknown]

NARRATIVE: CASE EVENT DATE: 20220819
